FAERS Safety Report 7662579-6 (Version None)
Quarter: 2011Q3

REPORT INFORMATION
  Report Type: 
  Country: None (occurrence: None)
  Receive Date: 20110805
  Receipt Date: 20101013
  Transmission Date: 20111222
  Serious: No
  Sender: FDA-Public Use
  Company Number: US-ABBOTT-10P-163-0678648-00

PATIENT
  Sex: Male
  Weight: 78.088 kg

DRUGS (9)
  1. NIASPAN [Suspect]
     Indication: BLOOD CHOLESTEROL INCREASED
     Dates: start: 20100601, end: 20100701
  2. PLAVIX [Concomitant]
     Indication: CORONARY ARTERIAL STENT INSERTION
  3. NIASPAN [Suspect]
     Dates: start: 20100701
  4. VITAMIN TAB [Concomitant]
     Indication: VITAMIN SUPPLEMENTATION
  5. NIASPAN [Suspect]
     Dosage: ONE NIGHT ONLY
     Dates: start: 20100701, end: 20100701
  6. CYMBALTA [Concomitant]
     Indication: CONVULSION PROPHYLAXIS
  7. FLOMAX [Concomitant]
     Indication: PROSTATIC DISORDER
  8. ZETIA [Concomitant]
     Indication: BLOOD CHOLESTEROL INCREASED
  9. NEURONTIN [Concomitant]
     Indication: CONVULSION PROPHYLAXIS

REACTIONS (2)
  - FLUSHING [None]
  - DIZZINESS [None]
